FAERS Safety Report 9728984 (Version 1)
Quarter: 2013Q4

REPORT INFORMATION
  Report Type: Spontaneous
  Country: US (occurrence: US)
  Receive Date: 20131204
  Receipt Date: 20131204
  Transmission Date: 20140711
  Serious: Yes (Hospitalization)
  Sender: FDA-Public Use
  Company Number: US-ENDO PHARMACEUTICALS INC.-OXAC20120001

PATIENT
  Age: 98 Year
  Sex: Female

DRUGS (2)
  1. OXYCODONE/ACETAMINOPHEN TABLETS [Suspect]
     Indication: PAIN
     Dosage: UNKNOWN
     Route: 048
     Dates: start: 20121108, end: 201211
  2. OXYCODONE/ACETAMINOPHEN TABLETS [Suspect]
     Indication: WRIST FRACTURE

REACTIONS (3)
  - Confusional state [Not Recovered/Not Resolved]
  - Hallucination [Not Recovered/Not Resolved]
  - Urinary tract infection [Not Recovered/Not Resolved]
